FAERS Safety Report 23559855 (Version 4)
Quarter: 2024Q3

REPORT INFORMATION
  Report Type: Report from Study
  Country: DE (occurrence: DE)
  Receive Date: 20240223
  Receipt Date: 20240801
  Transmission Date: 20241017
  Serious: No
  Sender: PFIZER
  Company Number: DE-PFM-2022-07697

PATIENT
  Age: 54 Year
  Sex: Male
  Weight: 103 kg

DRUGS (12)
  1. BRAFTOVI [Suspect]
     Active Substance: ENCORAFENIB
     Indication: Colorectal cancer
     Dosage: 300 MG/DAY
     Route: 048
     Dates: start: 20220707, end: 20220907
  2. CETUXIMAB [Suspect]
     Active Substance: CETUXIMAB
     Indication: Colorectal cancer
     Dosage: 400 MG/M2, WEEKLY, LIQUID FORMULATION
     Route: 042
     Dates: start: 20220707, end: 20220901
  3. AMLODIPINE MALEATE [Concomitant]
     Active Substance: AMLODIPINE MALEATE
     Indication: Diagnostic procedure
     Dosage: 5 MG, DAILY
     Route: 048
     Dates: start: 19950606, end: 20221002
  4. HCT-BETA [Concomitant]
     Indication: Diagnostic procedure
     Dosage: 12.5 MG, DAILY
     Route: 048
     Dates: start: 19950606, end: 20221002
  5. VALSARTAN [Concomitant]
     Active Substance: VALSARTAN
     Indication: Diagnostic procedure
     Dosage: 160 MG, DAILY
     Route: 048
     Dates: start: 19950606, end: 20221002
  6. ALLOPURINOL [Concomitant]
     Active Substance: ALLOPURINOL
     Indication: Diagnostic procedure
     Dosage: 100 MG, DAILY
     Route: 048
     Dates: start: 19950606, end: 20221002
  7. MCP-RATIOPHARM [Concomitant]
     Active Substance: METOCLOPRAMIDE HYDROCHLORIDE
     Indication: Prophylaxis
     Dosage: 20 MG, TID (3/DAY)
     Route: 048
     Dates: start: 20220624, end: 20221002
  8. PANTOPRAZOLE SODIUM [Concomitant]
     Active Substance: PANTOPRAZOLE SODIUM
     Indication: Prophylaxis
     Dosage: 40 MG, DAILY
     Route: 048
     Dates: start: 20220624, end: 20221002
  9. NORFLOXACIN [Concomitant]
     Active Substance: NORFLOXACIN
     Indication: Diagnostic procedure
     Dosage: 5 UG, WEEKLY
     Route: 062
     Dates: start: 20220624, end: 20221002
  10. XARELTO [Concomitant]
     Active Substance: RIVAROXABAN
     Indication: Diagnostic procedure
     Dosage: 20 MG, DAILY
     Route: 048
     Dates: start: 20220630, end: 20220908
  11. METAMIZOLE [Concomitant]
     Active Substance: METAMIZOLE
     Indication: Diagnostic procedure
     Dosage: 1 G, QID (4/DAY)
     Route: 048
     Dates: start: 20220703, end: 20221002
  12. DIMETINDENE [DIMETINDENE MALEATE] [Concomitant]
     Indication: Prophylaxis
     Dosage: 4 MG, CYCLICAL
     Route: 042
     Dates: start: 20220707, end: 20220901

REACTIONS (3)
  - Nausea [Recovered/Resolved]
  - Abdominal pain [Recovered/Resolved]
  - Rash [Recovered/Resolved]

NARRATIVE: CASE EVENT DATE: 20220707
